FAERS Safety Report 7630704-9 (Version None)
Quarter: 2011Q3

REPORT INFORMATION
  Report Type: 
  Country: None (occurrence: None)
  Receive Date: 20110722
  Receipt Date: 20110614
  Transmission Date: 20111222
  Serious: Yes (Death, Hospitalization, Other)
  Sender: FDA-Public Use
  Company Number: US-BAXTER-2008BH002047

PATIENT
  Age: 84 Year
  Sex: Male
  Weight: 95 kg

DRUGS (22)
  1. HEPARIN SODIUM INJECTION [Suspect]
     Route: 058
     Dates: start: 20080206, end: 20080207
  2. ASPIRIN [Concomitant]
     Indication: CARDIAC DISORDER
     Route: 048
     Dates: start: 19980101
  3. METOPROLOL TARTRATE [Concomitant]
     Indication: CARDIAC DISORDER
     Route: 048
     Dates: start: 20020101
  4. LIPITOR [Concomitant]
     Indication: HYPERCHOLESTEROLAEMIA
     Route: 048
     Dates: start: 20020101
  5. LEVAQUIN [Concomitant]
     Indication: PRODUCT USED FOR UNKNOWN INDICATION
     Route: 042
  6. HEPARIN SODIUM 5,000 UNITS IN DEXTROSE 5% [Suspect]
     Indication: THROMBOSIS PROPHYLAXIS
     Route: 042
     Dates: start: 20080116, end: 20080117
  7. AVODART [Concomitant]
     Indication: URINARY TRACT DISORDER
     Route: 048
     Dates: start: 20020101
  8. TERAZOSIN HCL [Concomitant]
     Indication: URINARY TRACT DISORDER
     Route: 048
     Dates: start: 20040101
  9. PROTONIX [Concomitant]
     Indication: PRODUCT USED FOR UNKNOWN INDICATION
     Route: 048
  10. HEPARIN SODIUM INJECTION [Suspect]
     Indication: THROMBOSIS PROPHYLAXIS
     Route: 042
     Dates: start: 20080116, end: 20080116
  11. FUROSEMIDE [Concomitant]
     Indication: HYPERTENSION
     Route: 048
     Dates: start: 20020101
  12. TERAZOSIN HCL [Concomitant]
     Route: 065
  13. TYLENOL-500 [Concomitant]
     Indication: PYREXIA
     Route: 048
  14. RESTORIL [Concomitant]
     Indication: INSOMNIA
     Route: 048
  15. HEPARIN SODIUM INJECTION [Suspect]
     Route: 058
     Dates: start: 20080206, end: 20080207
  16. HEPARIN SODIUM 5,000 UNITS IN DEXTROSE 5% [Suspect]
     Route: 042
     Dates: start: 20080117, end: 20080119
  17. PLAVIX [Concomitant]
     Indication: ANTIPLATELET THERAPY
     Route: 048
     Dates: start: 20080101
  18. PERCOCET [Concomitant]
     Indication: PAIN
     Route: 048
  19. TORSEMIDE [Concomitant]
     Indication: PRODUCT USED FOR UNKNOWN INDICATION
     Route: 065
  20. LISINOPRIL [Concomitant]
     Indication: HYPERTENSION
     Route: 048
     Dates: start: 20040101
  21. LISINOPRIL [Concomitant]
     Route: 065
  22. DUONEB [Concomitant]
     Indication: PRODUCT USED FOR UNKNOWN INDICATION
     Route: 065

REACTIONS (19)
  - BRONCHITIS [None]
  - PYREXIA [None]
  - GASTROINTESTINAL DISORDER [None]
  - HEART RATE INCREASED [None]
  - BLOOD TEST ABNORMAL [None]
  - HAEMORRHAGE [None]
  - DIARRHOEA [None]
  - DECREASED APPETITE [None]
  - FALL [None]
  - PANCYTOPENIA [None]
  - HEPARIN-INDUCED THROMBOCYTOPENIA TEST [None]
  - ASTHENIA [None]
  - FATIGUE [None]
  - DEATH [None]
  - HYPOTENSION [None]
  - CONTUSION [None]
  - DYSPNOEA [None]
  - FAECES DISCOLOURED [None]
  - JOINT INJURY [None]
